FAERS Safety Report 13601610 (Version 1)
Quarter: 2017Q2

REPORT INFORMATION
  Report Type: Spontaneous
  Country: US (occurrence: US)
  Receive Date: 20170601
  Receipt Date: 20170601
  Transmission Date: 20170830
  Serious: No
  Sender: FDA-Public Use
  Company Number: US-BAUSCH-BL-2017-001784

PATIENT
  Age: 53 Year
  Sex: Male

DRUGS (1)
  1. ELIDEL [Suspect]
     Active Substance: PIMECROLIMUS
     Indication: DERMATITIS
     Dosage: APPLY TO EYELIDS TWICE DAILY
     Route: 061
     Dates: start: 20170118

REACTIONS (5)
  - Application site erythema [Unknown]
  - Off label use [Unknown]
  - Application site irritation [Unknown]
  - Application site pain [Unknown]
  - Lacrimation increased [Unknown]

NARRATIVE: CASE EVENT DATE: 20170118
